FAERS Safety Report 4448417-3 (Version None)
Quarter: 2004Q3

REPORT INFORMATION
  Report Type: 
  Country: None (occurrence: None)
  Receive Date: 20040908
  Receipt Date: 20040908
  Transmission Date: 20050211
  Serious: Yes (Disabling)
  Sender: FDA-Public Use
  Company Number: None

PATIENT
  Age: 42 Year
  Sex: Female
  Weight: 88.4514 kg

DRUGS (2)
  1. CIPROFLOXACIN [Suspect]
     Indication: DIVERTICULITIS
     Dosage: ONE   TWICE DAY   ORAL
     Route: 048
     Dates: start: 20040901, end: 20040906
  2. METRONIDAZOLE [Suspect]
     Indication: URINARY TRACT INFECTION
     Dosage: ONE   FOUR TIMES   ORAL
     Route: 048
     Dates: start: 20040831, end: 20040906

REACTIONS (17)
  - AGITATION [None]
  - ARTHRALGIA [None]
  - ARTHROPATHY [None]
  - BACK PAIN [None]
  - CHROMATURIA [None]
  - CRYING [None]
  - DYSARTHRIA [None]
  - GAIT DISTURBANCE [None]
  - HEADACHE [None]
  - MEMORY IMPAIRMENT [None]
  - NERVOUSNESS [None]
  - PAIN [None]
  - PARAESTHESIA [None]
  - PERIPHERAL COLDNESS [None]
  - SPEECH DISORDER [None]
  - TENDON DISORDER [None]
  - VISION BLURRED [None]
